FAERS Safety Report 23132807 (Version 5)
Quarter: 2025Q2

REPORT INFORMATION
  Report Type: Spontaneous
  Country: FR (occurrence: FR)
  Receive Date: 20231101
  Receipt Date: 20250521
  Transmission Date: 20250716
  Serious: Yes (Other)
  Sender: AUROBINDO
  Company Number: FR-STADA-289305

PATIENT
  Age: 41 Year
  Sex: Female

DRUGS (2)
  1. TRAMADOL [Suspect]
     Active Substance: TRAMADOL
     Indication: Product used for unknown indication
     Route: 065
  2. BUPRENORPHINE HYDROCHLORIDE [Suspect]
     Active Substance: BUPRENORPHINE HYDROCHLORIDE
     Indication: Drug use disorder
     Route: 065

REACTIONS (4)
  - Drug use disorder [Unknown]
  - Drug dependence [Unknown]
  - Intentional product misuse [Unknown]
  - Treatment noncompliance [Unknown]
